FAERS Safety Report 16752386 (Version 1)
Quarter: 2019Q3

REPORT INFORMATION
  Report Type: Other
  Country: NL (occurrence: ES)
  Receive Date: 20190828
  Receipt Date: 20190828
  Transmission Date: 20191005
  Serious: Yes (Hospitalization)
  Sender: FDA-Public Use
  Company Number: NL-KOWA-19EU002268

PATIENT

DRUGS (2)
  1. ALIPZA [Suspect]
     Active Substance: PITAVASTATIN
     Indication: MITRAL VALVOTOMY
     Dosage: UNK, QD
     Route: 048
     Dates: start: 2017, end: 20170123
  2. ALDOCUMAR [Interacting]
     Active Substance: WARFARIN SODIUM
     Indication: MITRAL VALVOTOMY
     Dosage: UNK UNK, QD
     Route: 048
     Dates: start: 2017, end: 20170123

REACTIONS (3)
  - Abdominal wall haematoma [Recovered/Resolved]
  - Off label use [Unknown]
  - Drug interaction [Unknown]

NARRATIVE: CASE EVENT DATE: 20170123
